FAERS Safety Report 12742737 (Version 1)
Quarter: 2016Q3

REPORT INFORMATION
  Report Type: Spontaneous
  Country: US (occurrence: US)
  Receive Date: 20160914
  Receipt Date: 20160914
  Transmission Date: 20161109
  Serious: Yes (Other)
  Sender: FDA-Public Use
  Company Number: None

PATIENT
  Age: 78 Year
  Sex: Female
  Weight: 60.75 kg

DRUGS (8)
  1. ALLOPURINOL. [Concomitant]
     Active Substance: ALLOPURINOL
  2. HCTZ [Concomitant]
     Active Substance: HYDROCHLOROTHIAZIDE
  3. DIGOXIN. [Concomitant]
     Active Substance: DIGOXIN
  4. LOTENSEN [Concomitant]
  5. Q-10 [Concomitant]
  6. LYRICA [Suspect]
     Active Substance: PREGABALIN
     Indication: SEIZURE
     Route: 048
     Dates: start: 20160907, end: 20160914
  7. PRAVASTATIN. [Concomitant]
     Active Substance: PRAVASTATIN
  8. FLAX OIL [Concomitant]

REACTIONS (6)
  - Amnesia [None]
  - Asthenia [None]
  - Fatigue [None]
  - Gait disturbance [None]
  - Libido decreased [None]
  - Irritability [None]

NARRATIVE: CASE EVENT DATE: 20160914
